FAERS Safety Report 5714913-1 (Version None)
Quarter: 2008Q2

REPORT INFORMATION
  Report Type: 
  Country: None (occurrence: None)
  Receive Date: 20080423
  Receipt Date: 20071212
  Transmission Date: 20081010
  Serious: No
  Sender: FDA-Public Use
  Company Number: US-BAYER-200716496NA

PATIENT
  Age: 59 Year
  Sex: Female
  Weight: 89 kg

DRUGS (6)
  1. LEUKINE [Suspect]
     Indication: METASTATIC MALIGNANT MELANOMA
     Route: 058
     Dates: start: 20071201
  2. METHYLPHENIDATE HCL [Concomitant]
  3. HYDROXYZINE [Concomitant]
  4. FISH OIL [Concomitant]
  5. VITAMINS [Concomitant]
  6. ALLEGRA [Concomitant]

REACTIONS (3)
  - INJECTION SITE INDURATION [None]
  - INJECTION SITE PRURITUS [None]
  - INJECTION SITE WARMTH [None]
